FAERS Safety Report 8773925 (Version 3)
Quarter: 2012Q4

REPORT INFORMATION
  Report Type: Report from Study
  Country: DE (occurrence: BE)
  Receive Date: 20120907
  Receipt Date: 20121011
  Transmission Date: 20130627
  Serious: Yes (Other)
  Sender: FDA-Public Use
  Company Number: DE-ACTELION-A-US2012-71014

PATIENT
  Sex: Male
  Weight: 79 kg

DRUGS (2)
  1. VENTAVIS [Suspect]
     Indication: PULMONARY HYPERTENSION
     Dosage: UNK
     Route: 055
     Dates: start: 20120626
  2. LASIX [Suspect]
     Indication: OEDEMA

REACTIONS (4)
  - Weight decreased [Unknown]
  - Renal impairment [Unknown]
  - Oedema [Unknown]
  - Feeling abnormal [Unknown]
